FAERS Safety Report 4837917-X (Version None)
Quarter: 2005Q4

REPORT INFORMATION
  Report Type: 
  Country: None (occurrence: None)
  Receive Date: 20051123
  Receipt Date: 20051123
  Transmission Date: 20060501
  Serious: Yes (Other)
  Sender: FDA-Public Use
  Company Number: None

PATIENT
  Age: 45 Year
  Sex: Female
  Weight: 68.4932 kg

DRUGS (11)
  1. LUNESTA [Suspect]
     Indication: INSOMNIA
     Dosage: 3 MG PO
     Route: 048
     Dates: start: 20051115
  2. KLONOPIN [Concomitant]
  3. PREDNISONE [Concomitant]
  4. AMBIEN [Concomitant]
  5. EFFEXOR XR [Concomitant]
  6. ANUSOL-HC (HYDROCORTISONE ACETATE) [Concomitant]
  7. LEVISIN/SL (HYOSCYAMINE SULFAATE) [Concomitant]
  8. EPIPEN (EPINEPHRINE HCL (ANAPHYLAZIS)) [Concomitant]
  9. FLEXERIL [Concomitant]
  10. TORADOL [Concomitant]
  11. RHINOCORT AQUA (BUDESONIDE (NASAL)) [Concomitant]

REACTIONS (1)
  - RASH [None]
